FAERS Safety Report 12745449 (Version 2)
Quarter: 2016Q4

REPORT INFORMATION
  Report Type: Spontaneous
  Country: US (occurrence: US)
  Receive Date: 20160915
  Receipt Date: 20161005
  Transmission Date: 20170207
  Serious: No
  Sender: FDA-Public Use
  Company Number: US-PFIZER INC-2016426621

PATIENT
  Sex: Female

DRUGS (1)
  1. PREMARIN [Suspect]
     Active Substance: ESTROGENS, CONJUGATED
     Indication: ATROPHIC VULVOVAGINITIS
     Dosage: 0.625 MG, (3X PER WEEK)
     Route: 061

REACTIONS (4)
  - Upper respiratory tract infection [Unknown]
  - Sinus disorder [Unknown]
  - Product use issue [Unknown]
  - Nasopharyngitis [Unknown]
